FAERS Safety Report 5528228-8 (Version None)
Quarter: 2007Q4

REPORT INFORMATION
  Report Type: 
  Country: None (occurrence: None)
  Receive Date: 20071128
  Receipt Date: 20071116
  Transmission Date: 20080405
  Serious: Yes (Disabling, Other)
  Sender: FDA-Public Use
  Company Number: GB-PFIZER INC-2007074366

PATIENT
  Age: 28 Year
  Sex: Female

DRUGS (3)
  1. CHAMPIX [Suspect]
     Route: 048
     Dates: start: 20070330, end: 20070401
  2. NORGESTIMATE AND ETHINYL ESTRADIOL [Concomitant]
  3. NIQUITIN [Concomitant]
     Dosage: DAILY DOSE:14MG
     Route: 062
     Dates: start: 20070428, end: 20070428

REACTIONS (3)
  - HEART RATE INCREASED [None]
  - HYPERTENSION [None]
  - PANIC ATTACK [None]
